FAERS Safety Report 5103125-0 (Version None)
Quarter: 2006Q3

REPORT INFORMATION
  Report Type: 
  Country: None (occurrence: None)
  Receive Date: 20060908
  Receipt Date: 20060829
  Transmission Date: 20061208
  Serious: Yes (Other)
  Sender: FDA-Public Use
  Company Number: 2006105096

PATIENT
  Age: 31 Year
  Sex: Female
  Weight: 58 kg

DRUGS (1)
  1. PROVERA [Suspect]
     Indication: PREMENSTRUAL SYNDROME
     Dosage: 5 MG (5 MG, DAILY), ORAL
     Route: 048
     Dates: start: 20051201, end: 20051201

REACTIONS (2)
  - HYPOAESTHESIA FACIAL [None]
  - PARAESTHESIA [None]
